FAERS Safety Report 10214232 (Version 4)
Quarter: 2014Q2

REPORT INFORMATION
  Report Type: Spontaneous
  Country: AU (occurrence: AU)
  Receive Date: 20140603
  Receipt Date: 20140626
  Transmission Date: 20141212
  Serious: Yes (Death)
  Sender: FDA-Public Use
  Company Number: AU-PFIZER INC-2011042931

PATIENT
  Age: 84 Year
  Sex: Male

DRUGS (1)
  1. MS CONTIN [Suspect]
     Dosage: UNK
     Route: 048
     Dates: start: 201004, end: 20100416

REACTIONS (3)
  - Overdose [Fatal]
  - Victim of homicide [Fatal]
  - Accidental exposure to product [Fatal]
